FAERS Safety Report 20167089 (Version 3)
Quarter: 2022Q1

REPORT INFORMATION
  Report Type: Report from Study
  Country: CN (occurrence: CN)
  Receive Date: 20211209
  Receipt Date: 20220217
  Transmission Date: 20220423
  Serious: Yes (Death)
  Sender: FDA-Public Use
  Company Number: CN-PFIZER INC-202101723378

PATIENT
  Age: 65 Year
  Sex: Male
  Weight: 57 kg

DRUGS (19)
  1. PACLITAXEL [Suspect]
     Active Substance: PACLITAXEL
     Indication: Squamous cell carcinoma of lung
     Dosage: 263 MG 1X3 WEEKS.
     Route: 041
     Dates: start: 20210611
  2. PACLITAXEL [Suspect]
     Active Substance: PACLITAXEL
     Dosage: 263 MG
     Route: 041
     Dates: start: 20210701
  3. PACLITAXEL [Suspect]
     Active Substance: PACLITAXEL
     Dosage: 261 MG
     Route: 041
     Dates: start: 20210729
  4. PACLITAXEL [Suspect]
     Active Substance: PACLITAXEL
     Dosage: 260 MG
     Route: 041
     Dates: start: 20210819
  5. CARBOPLATIN [Suspect]
     Active Substance: CARBOPLATIN
     Indication: Squamous cell carcinoma of lung
     Dosage: 400 MG 1X 3 WEEKS
     Route: 041
     Dates: start: 20210611
  6. CARBOPLATIN [Suspect]
     Active Substance: CARBOPLATIN
     Dosage: 450 MG
     Route: 041
     Dates: start: 20210701
  7. CARBOPLATIN [Suspect]
     Active Substance: CARBOPLATIN
     Dosage: 450 MG
     Route: 041
     Dates: start: 20210729
  8. CARBOPLATIN [Suspect]
     Active Substance: CARBOPLATIN
     Dosage: 450 MG
     Route: 041
     Dates: start: 20210819
  9. INVESTIGATIONAL PRODUCT [Suspect]
     Active Substance: INVESTIGATIONAL PRODUCT
     Indication: Squamous cell carcinoma of lung
     Dosage: 265 MG INTRAVENOUS DRIP 1X/3 WEEKS).
     Route: 041
     Dates: start: 20210610
  10. INVESTIGATIONAL PRODUCT [Suspect]
     Active Substance: INVESTIGATIONAL PRODUCT
     Dosage: 99.9 MG
     Dates: start: 20210701, end: 20210701
  11. INVESTIGATIONAL PRODUCT [Suspect]
     Active Substance: INVESTIGATIONAL PRODUCT
     Dosage: 53.3 MG
     Dates: start: 20210729, end: 20210729
  12. INVESTIGATIONAL PRODUCT [Suspect]
     Active Substance: INVESTIGATIONAL PRODUCT
     Dosage: 236.9 MG
     Route: 041
     Dates: start: 20210819, end: 20210819
  13. INVESTIGATIONAL PRODUCT [Suspect]
     Active Substance: INVESTIGATIONAL PRODUCT
     Dosage: 181.9 MG 1X 2WEEKS
     Route: 041
     Dates: start: 20210909
  14. INVESTIGATIONAL PRODUCT [Suspect]
     Active Substance: INVESTIGATIONAL PRODUCT
     Dosage: 270 MG
     Route: 041
     Dates: start: 20210924
  15. INVESTIGATIONAL PRODUCT [Suspect]
     Active Substance: INVESTIGATIONAL PRODUCT
     Dosage: 275 MG
     Route: 041
     Dates: start: 20211009
  16. INVESTIGATIONAL PRODUCT [Suspect]
     Active Substance: INVESTIGATIONAL PRODUCT
     Dosage: 275 MG
     Route: 041
     Dates: start: 20211021
  17. INVESTIGATIONAL PRODUCT [Suspect]
     Active Substance: INVESTIGATIONAL PRODUCT
     Dosage: 280 MG
     Route: 041
     Dates: start: 20211103
  18. INVESTIGATIONAL PRODUCT [Suspect]
     Active Substance: INVESTIGATIONAL PRODUCT
     Dosage: 285 MG
     Route: 041
     Dates: start: 20211115
  19. BACLOFEN [Concomitant]
     Active Substance: BACLOFEN
     Dosage: 5 MG, THREE TIMES PER DAY
     Route: 048
     Dates: start: 20211123, end: 20211123

REACTIONS (1)
  - Death [Fatal]

NARRATIVE: CASE EVENT DATE: 20211123
